FAERS Safety Report 4509651-7 (Version None)
Quarter: 2004Q4

REPORT INFORMATION
  Report Type: 
  Country: None (occurrence: None)
  Receive Date: 20041124
  Receipt Date: 20041115
  Transmission Date: 20050328
  Serious: Yes (Hospitalization)
  Sender: FDA-Public Use
  Company Number: 200414321FR

PATIENT
  Age: 58 Year
  Sex: Male

DRUGS (3)
  1. FLAGYL [Suspect]
     Route: 048
  2. ACETAMINOPHEN [Suspect]
     Route: 048
  3. X-PREP [Concomitant]
     Route: 048
     Dates: start: 20040927, end: 20040927

REACTIONS (8)
  - AZOTAEMIA [None]
  - BLOOD CREATININE INCREASED [None]
  - BOWEL SOUNDS ABNORMAL [None]
  - HAEMANGIOMA [None]
  - HEPATITIS ACUTE [None]
  - HEPATOMEGALY [None]
  - SPLENOMEGALY [None]
  - VEIN DISORDER [None]
